FAERS Safety Report 23628721 (Version 2)
Quarter: 2024Q2

REPORT INFORMATION
  Report Type: Spontaneous
  Country: NO (occurrence: NO)
  Receive Date: 20240313
  Receipt Date: 20240401
  Transmission Date: 20240716
  Serious: Yes (Hospitalization)
  Sender: FDA-Public Use
  Company Number: NO-ACRAF SpA-2024-033717

PATIENT

DRUGS (6)
  1. XCOPRI [Suspect]
     Active Substance: CENOBAMATE
     Indication: Partial seizures
     Dosage: 12.5 MILLIGRAM
     Route: 048
     Dates: start: 202309
  2. XCOPRI [Suspect]
     Active Substance: CENOBAMATE
     Dosage: 200 MILLIGRAM
     Route: 048
     Dates: start: 202401
  3. XCOPRI [Suspect]
     Active Substance: CENOBAMATE
     Dosage: 250 MILLIGRAM
     Route: 048
     Dates: start: 202402
  4. ACETAZOLAMIDE [Suspect]
     Active Substance: ACETAZOLAMIDE
     Indication: Partial seizures
     Dosage: 1250 MILLIGRAM
     Route: 065
     Dates: start: 2023
  5. BRIVARACETAM [Suspect]
     Active Substance: BRIVARACETAM
     Indication: Partial seizures
     Dosage: 200 MILLIGRAM
     Route: 048
     Dates: start: 2023
  6. RITUXIMAB [Suspect]
     Active Substance: RITUXIMAB
     Indication: Partial seizures
     Dosage: ANTICD20 TREATMENT 2 INFUSIONS (2 IN 1 D)
     Route: 042
     Dates: start: 20230101, end: 202310

REACTIONS (9)
  - Off label use [Not Recovered/Not Resolved]
  - Streptococcal infection [Unknown]
  - Parvovirus B19 infection [Unknown]
  - Oral candidiasis [Unknown]
  - Campylobacter infection [Unknown]
  - Immune system disorder [Unknown]
  - Pancytopenia [Unknown]
  - CD4 lymphocytes decreased [Unknown]
  - B-lymphocyte count decreased [Unknown]

NARRATIVE: CASE EVENT DATE: 20230901
